FAERS Safety Report 25900699 (Version 1)
Quarter: 2025Q4

REPORT INFORMATION
  Report Type: Report from Study
  Country: US (occurrence: US)
  Receive Date: 20251009
  Receipt Date: 20251009
  Transmission Date: 20260117
  Serious: Yes (Other)
  Sender: ALNYLAM PHARMACEUTICALS
  Company Number: US-ALNYLAM PHARMACEUTICALS, INC.-ALN-2025-006222

PATIENT

DRUGS (1)
  1. GIVLAARI [Suspect]
     Active Substance: GIVOSIRAN SODIUM
     Indication: Porphyria acute
     Dosage: UNK
     Route: 065

REACTIONS (12)
  - Seizure [Recovering/Resolving]
  - Porphyria acute [Recovering/Resolving]
  - Pain [Recovering/Resolving]
  - Peroneal nerve palsy [Recovering/Resolving]
  - Nervous system disorder [Recovering/Resolving]
  - Vomiting [Recovering/Resolving]
  - Ill-defined disorder [Recovering/Resolving]
  - Anaemia [Recovering/Resolving]
  - Muscle atrophy [Recovering/Resolving]
  - Cholecystectomy [Recovering/Resolving]
  - Weight decreased [Recovering/Resolving]
  - Weight increased [Recovering/Resolving]
